FAERS Safety Report 12729149 (Version 2)
Quarter: 2016Q4

REPORT INFORMATION
  Report Type: Report from Study
  Country: ES (occurrence: ES)
  Receive Date: 20160909
  Receipt Date: 20161021
  Transmission Date: 20170207
  Serious: Yes (Hospitalization, Other)
  Sender: FDA-Public Use
  Company Number: ES-JNJFOC-20160827436

PATIENT
  Age: 73 Year
  Sex: Male
  Weight: 69.5 kg

DRUGS (2)
  1. CLOPIDOGREL [Concomitant]
     Active Substance: CLOPIDOGREL BISULFATE
     Indication: MYOCARDIAL ISCHAEMIA
     Route: 065
     Dates: start: 2009, end: 201603
  2. IBRUTINIB [Suspect]
     Active Substance: IBRUTINIB
     Indication: MANTLE CELL LYMPHOMA
     Route: 048
     Dates: start: 201511

REACTIONS (4)
  - Pancytopenia [Unknown]
  - Thrombocytopenia [Unknown]
  - Haematuria [Unknown]
  - Cataract operation [Unknown]

NARRATIVE: CASE EVENT DATE: 201603
